FAERS Safety Report 9742590 (Version 2)
Quarter: 2015Q3

REPORT INFORMATION
  Report Type: Spontaneous
  Country: US (occurrence: US)
  Receive Date: 20131210
  Receipt Date: 20150804
  Transmission Date: 20151125
  Serious: No
  Sender: FDA-Public Use
  Company Number: US-GILEAD-2009-0024542

PATIENT
  Age: 48 Year
  Sex: Female
  Weight: 49.89 kg

DRUGS (15)
  1. FORADIL [Concomitant]
     Active Substance: FORMOTEROL FUMARATE
  2. LETAIRIS [Suspect]
     Active Substance: AMBRISENTAN
     Indication: PULMONARY ARTERIAL HYPERTENSION
     Route: 048
     Dates: start: 20090903
  3. BENZONATATE. [Concomitant]
     Active Substance: BENZONATATE
  4. PULMICORT TURBUHALER [Concomitant]
     Active Substance: BUDESONIDE
  5. REVATIO [Concomitant]
     Active Substance: SILDENAFIL CITRATE
  6. QVAR [Concomitant]
     Active Substance: BECLOMETHASONE DIPROPIONATE
  7. AZITHROMYCIN [Concomitant]
     Active Substance: AZITHROMYCIN ANHYDROUS
  8. SINGULAIR [Concomitant]
     Active Substance: MONTELUKAST SODIUM
  9. ALDACTONE [Concomitant]
     Active Substance: SPIRONOLACTONE
  10. FUROSEMIDE. [Concomitant]
     Active Substance: FUROSEMIDE
  11. XANAX [Concomitant]
     Active Substance: ALPRAZOLAM
  12. VFEND [Concomitant]
     Active Substance: VORICONAZOLE
  13. TARCEVA [Concomitant]
     Active Substance: ERLOTINIB HYDROCHLORIDE
  14. DIGOXIN. [Concomitant]
     Active Substance: DIGOXIN
  15. ATROVENT INHALER [Concomitant]

REACTIONS (1)
  - Oedema [Unknown]
